FAERS Safety Report 4370590-6 (Version None)
Quarter: 2004Q2

REPORT INFORMATION
  Report Type: 
  Country: None (occurrence: None)
  Receive Date: 20040601
  Receipt Date: 20040322
  Transmission Date: 20050107
  Serious: No
  Sender: FDA-Public Use
  Company Number: USA040362693

PATIENT
  Age: 65 Year
  Sex: Male
  Weight: 79 kg

DRUGS (8)
  1. ALIMTA [Suspect]
     Indication: LUNG NEOPLASM MALIGNANT
     Dates: start: 20040227
  2. PROTONIX [Concomitant]
  3. RITALIN [Concomitant]
  4. MORPHINE [Concomitant]
  5. VITAMIN B12 FOR INJECTION (CYANOCOBALAMIN) [Concomitant]
  6. FOLIC ACID [Concomitant]
  7. VITAMIN SUPPLEMENTS [Concomitant]
  8. DECADRON (DXAMETHASONE) [Concomitant]

REACTIONS (7)
  - ASTHENIA [None]
  - CONFUSIONAL STATE [None]
  - FATIGUE [None]
  - PAIN IN EXTREMITY [None]
  - TREMOR [None]
  - VISUAL DISTURBANCE [None]
  - VOMITING [None]
